FAERS Safety Report 16269298 (Version 1)
Quarter: 2019Q2

REPORT INFORMATION
  Report Type: Spontaneous
  Country: US (occurrence: US)
  Receive Date: 20190502
  Receipt Date: 20190502
  Transmission Date: 20190711
  Serious: Yes (Other)
  Sender: FDA-Public Use
  Company Number: None

PATIENT
  Age: 69 Year
  Sex: Female
  Weight: 55.35 kg

DRUGS (15)
  1. CALTRATE [Concomitant]
     Active Substance: CALCIUM CARBONATE
  2. MELATONIN [Concomitant]
     Active Substance: MELATONIN
  3. CLARITIN [Concomitant]
     Active Substance: LORATADINE
  4. METFORMIN [Concomitant]
     Active Substance: METFORMIN HYDROCHLORIDE
  5. CAPECITABINE. [Suspect]
     Active Substance: CAPECITABINE
     Indication: PANCREATIC CARCINOMA
     Route: 048
     Dates: start: 20181130
  6. ATORVASTATIN [Concomitant]
     Active Substance: ATORVASTATIN
  7. EPLERENONE. [Concomitant]
     Active Substance: EPLERENONE
  8. HYDROCHLOROTHIAZIDE. [Concomitant]
     Active Substance: HYDROCHLOROTHIAZIDE
  9. LOSARTAN. [Concomitant]
     Active Substance: LOSARTAN
  10. ZADITOR [Concomitant]
     Active Substance: KETOTIFEN FUMARATE
  11. POTASSIUM [Concomitant]
     Active Substance: POTASSIUM
  12. REFRESH P.M. [Concomitant]
     Active Substance: MINERAL OIL\PETROLATUM
  13. BLINK TEARS [Concomitant]
     Active Substance: POLYETHYLENE GLYCOL 400
  14. COLACE [Concomitant]
     Active Substance: DOCUSATE SODIUM
  15. LABETALOL [Concomitant]
     Active Substance: LABETALOL\LABETALOL HYDROCHLORIDE

REACTIONS (1)
  - Disease progression [None]
